FAERS Safety Report 24210060 (Version 1)
Quarter: 2024Q3

REPORT INFORMATION
  Report Type: Other
  Country: GR (occurrence: GR)
  Receive Date: 20240814
  Receipt Date: 20240814
  Transmission Date: 20241017
  Serious: Yes (Hospitalization)
  Sender: APTAPHARMA
  Company Number: GR-AptaPharma Inc.-2160434

PATIENT
  Age: 76 Year
  Sex: Female

DRUGS (1)
  1. IBUPROFEN [Suspect]
     Active Substance: IBUPROFEN
     Indication: Product used for unknown indication
     Route: 065

REACTIONS (3)
  - Asthenia [Unknown]
  - Back pain [Unknown]
  - Oliguria [Unknown]
